FAERS Safety Report 9846002 (Version 3)
Quarter: 2014Q3

REPORT INFORMATION
  Report Type: Spontaneous
  Country: US (occurrence: US)
  Receive Date: 20140127
  Receipt Date: 20140702
  Transmission Date: 20150326
  Serious: Yes (Hospitalization, Other)
  Sender: FDA-Public Use
  Company Number: US-BAYER-2014-010895

PATIENT
  Age: 49 Year
  Sex: Female
  Weight: 77.1 kg

DRUGS (1)
  1. MIRENA [Suspect]
     Active Substance: LEVONORGESTREL
     Dosage: 20 MCG/24HR, HS
     Route: 015
     Dates: start: 20070322, end: 20111229

REACTIONS (8)
  - Injury [None]
  - Emotional distress [None]
  - Genital haemorrhage [None]
  - Uterine perforation [None]
  - Device dislocation [None]
  - Dyspareunia [None]
  - Pelvic pain [None]
  - Device issue [None]

NARRATIVE: CASE EVENT DATE: 2011
